FAERS Safety Report 26058603 (Version 1)
Quarter: 2025Q4

REPORT INFORMATION
  Report Type: Spontaneous
  Country: US (occurrence: None)
  Receive Date: 20251117
  Receipt Date: 20251117
  Transmission Date: 20260119
  Serious: Yes (Disabling, Other)
  Sender: FDA-CTU
  Company Number: None

PATIENT
  Age: 26 Year
  Sex: Male
  Weight: 72 kg

DRUGS (2)
  1. ADDERALL [Suspect]
     Active Substance: AMPHETAMINE ASPARTATE\AMPHETAMINE SULFATE\DEXTROAMPHETAMINE SACCHARATE\DEXTROAMPHETAMINE SULFATE
     Indication: Attention deficit hyperactivity disorder
     Dosage: FREQUENCY : DAILY;?
     Route: 048
     Dates: start: 20200815, end: 20230201
  2. NONE [Concomitant]
     Active Substance: UNSPECIFIED INGREDIENT

REACTIONS (14)
  - Drug dependence [None]
  - Social avoidant behaviour [None]
  - Personality change [None]
  - Cognitive disorder [None]
  - Obsessive-compulsive disorder [None]
  - Condition aggravated [None]
  - Obsessive thoughts [None]
  - Weight decreased [None]
  - Drug abuse [None]
  - Gender dysphoria [None]
  - Medical procedure [None]
  - Post procedural complication [None]
  - Injury [None]
  - Product information content complaint [None]

NARRATIVE: CASE EVENT DATE: 20251101
